FAERS Safety Report 11172240 (Version 1)
Quarter: 2015Q2

REPORT INFORMATION
  Report Type: Spontaneous
  Country: JP (occurrence: JP)
  Receive Date: 20150608
  Receipt Date: 20150608
  Transmission Date: 20150821
  Serious: Yes (Hospitalization, Other)
  Sender: FDA-Public Use
  Company Number: JP-ELI_LILLY_AND_COMPANY-JP201506000043

PATIENT
  Age: 71 Year
  Sex: Male

DRUGS (5)
  1. HUMALOG [Suspect]
     Active Substance: INSULIN LISPRO
     Indication: TYPE 2 DIABETES MELLITUS
     Dosage: UNK
     Route: 058
  2. DECADRAN                           /00016001/ [Concomitant]
     Indication: MALIGNANT ASCITES
     Dosage: UNK
     Route: 048
  3. HUMALOG [Suspect]
     Active Substance: INSULIN LISPRO
     Dosage: 340 IU, QD
     Route: 058
  4. HUMALOG [Suspect]
     Active Substance: INSULIN LISPRO
     Dosage: 19 IU, QD
     Route: 058
  5. DECADRONFOSFAT [Concomitant]
     Indication: MALIGNANT ASCITES
     Dosage: 9.9 MG, QD
     Route: 042

REACTIONS (5)
  - Malignant ascites [Unknown]
  - Blood glucose increased [Recovering/Resolving]
  - Glycosylated haemoglobin increased [Unknown]
  - Blood glucose increased [Recovering/Resolving]
  - Anti-insulin antibody positive [Not Recovered/Not Resolved]

NARRATIVE: CASE EVENT DATE: 201301
